FAERS Safety Report 5421819-4 (Version None)
Quarter: 2007Q3

REPORT INFORMATION
  Report Type: 
  Country: None (occurrence: None)
  Receive Date: 20070820
  Receipt Date: 20070810
  Transmission Date: 20080115
  Serious: Yes (Hospitalization, Other)
  Sender: FDA-Public Use
  Company Number: 163-20785-07060591

PATIENT
  Age: 66 Year
  Sex: Male
  Weight: 98.1 kg

DRUGS (22)
  1. THALOMID [Suspect]
     Indication: MULTIPLE MYELOMA
     Dosage: 200 MG, TWICE DAILY ON DAYS 1-4, ORAL, 100 MG, QD, NOT DAYS FROM 04 MAY07 TO 15MAY07, ORAL
     Route: 048
     Dates: start: 20070326, end: 20070519
  2. THALOMID [Suspect]
     Indication: MULTIPLE MYELOMA
     Dosage: 200 MG, TWICE DAILY ON DAYS 1-4, ORAL, 100 MG, QD, NOT DAYS FROM 04 MAY07 TO 15MAY07, ORAL
     Route: 048
     Dates: start: 20070523, end: 20070526
  3. VELCADE [Suspect]
     Indication: MULTIPLE MYELOMA
     Dosage: 2 MG, DAYS 1 + 4, NOT GIVEN ON DAYS 8 AND 11, INTRAVENOUS
     Route: 042
     Dates: start: 20070523, end: 20070526
  4. VELCADE [Suspect]
     Indication: MULTIPLE MYELOMA
     Dosage: 2 MG, DAYS 1 + 4, NOT GIVEN ON DAYS 8 AND 11, INTRAVENOUS
     Route: 042
     Dates: start: 20070722
  5. DEXAMETHASONE [Suspect]
     Indication: MULTIPLE MYELOMA
     Dosage: 40 MG, DAILY ON DAYS 1-4
     Dates: start: 20070523, end: 20070526
  6. CISPLATIN [Suspect]
     Indication: MULTIPLE MYELOMA
     Dosage: 10 MG/M2 - 7.5MG/M2, D 1-4, INTRAVENOUS
     Route: 042
     Dates: start: 20060503, end: 20070526
  7. ADRIAMYCIN PFS [Suspect]
     Indication: MULTIPLE MYELOMA
     Dosage: 10MG/M2 - 7.5MG/M2, D 4-7, INTRAVENOUS
     Route: 042
     Dates: start: 20060503
  8. CYCLOPHOSPHAMIDE [Suspect]
     Indication: MULTIPLE MYELOMA
     Dosage: 400MG/M2 - 300MG/M2, D 1-4, INTRAVENOUS
     Route: 042
     Dates: start: 20060503, end: 20070526
  9. ETOPOSIDE [Suspect]
     Indication: MULTIPLE MYELOMA
     Dosage: 40MG/M2 - 30MG/M2, D 1-4, INTRAVENOUS
     Route: 042
     Dates: start: 20060503, end: 20070526
  10. LEVAQUIN [Concomitant]
  11. ACYCLOVIR [Concomitant]
  12. LEVOTHYROXINE SODIUM [Concomitant]
  13. COMBIVENT [Concomitant]
  14. VYTORIN [Concomitant]
  15. TOPROL-XL [Concomitant]
  16. MAGNESIUM OXIDE (MAGNESIUM OXIDE) [Concomitant]
  17. PROCRIT [Concomitant]
  18. AVANDAMET [Concomitant]
  19. MULTIVITAMIN [Concomitant]
  20. LEVONOX (HEPARIN-FRACTION, SODIUM SALT) [Concomitant]
  21. NEUPOGEN [Concomitant]
  22. FLUCONAZOLE [Concomitant]

REACTIONS (6)
  - ABSCESS [None]
  - COLITIS [None]
  - DIVERTICULAR PERFORATION [None]
  - PLATELET COUNT DECREASED [None]
  - RED BLOOD CELL COUNT DECREASED [None]
  - WHITE BLOOD CELL COUNT DECREASED [None]
